FAERS Safety Report 25721227 (Version 1)
Quarter: 2025Q3

REPORT INFORMATION
  Report Type: Spontaneous
  Country: EU (occurrence: EU)
  Receive Date: 20250825
  Receipt Date: 20250825
  Transmission Date: 20251020
  Serious: Yes (Hospitalization, Other)
  Sender: CELLTRION
  Company Number: None

PATIENT

DRUGS (2)
  1. ADALIMUMAB [Suspect]
     Active Substance: ADALIMUMAB
     Indication: Hidradenitis
     Route: 058
     Dates: start: 202503
  2. ADALIMUMAB [Suspect]
     Active Substance: ADALIMUMAB

REACTIONS (1)
  - Vena cava embolism [Not Recovered/Not Resolved]

NARRATIVE: CASE EVENT DATE: 20250530
